FAERS Safety Report 6232190-2 (Version None)
Quarter: 2009Q2

REPORT INFORMATION
  Report Type: 
  Country: None (occurrence: None)
  Receive Date: 20090617
  Receipt Date: 20090610
  Transmission Date: 20091009
  Serious: Yes (Hospitalization)
  Sender: FDA-Public Use
  Company Number: FR-BRISTOL-MYERS SQUIBB COMPANY-14653745

PATIENT
  Age: 54 Year
  Sex: Male

DRUGS (7)
  1. ERBITUX [Suspect]
     Indication: TONSIL CANCER
     Dosage: 16FEB09-AFTER SIXTH CYCLE 21APR09-28APR09 (2 CYCLES) STOPPED AND RESTARTED ON 21APR09+28APR09
     Route: 042
     Dates: start: 20090216
  2. CARBOPLATIN [Suspect]
     Indication: TONSIL CANCER
     Dosage: 16FEB09-AFTER SIXTH CYCLE 21APR09-28APR09(2 CYCLES) STOPPED AND RESTARTED ON 21APR09+28APR09
     Route: 042
     Dates: start: 20090216
  3. RADIATION THERAPY [Suspect]
     Indication: TONSIL CANCER
     Dosage: 16FEB09-AFTER SIXTH CYCLE 21APR09-28APR09 1DF=45GRAY  STOPPED AND RESTARTED ON 21APR09+28APR09
     Dates: start: 20090216
  4. DEPAKOTE [Concomitant]
     Indication: BIPOLAR I DISORDER
     Dosage: TABS
     Route: 048
  5. PLAVIX [Concomitant]
     Indication: ISCHAEMIC CARDIOMYOPATHY
     Route: 048
  6. CARDENSIEL [Concomitant]
     Indication: ISCHAEMIC CARDIOMYOPATHY
     Dosage: TABS
     Route: 048
  7. TRIATEC [Concomitant]
     Indication: ISCHAEMIC CARDIOMYOPATHY
     Dosage: TABS
     Route: 048

REACTIONS (2)
  - RADIATION MUCOSITIS [None]
  - RADIATION SKIN INJURY [None]
